FAERS Safety Report 10736157 (Version 1)
Quarter: 2015Q1

REPORT INFORMATION
  Report Type: Spontaneous
  Country: PL (occurrence: PL)
  Receive Date: 20150126
  Receipt Date: 20150126
  Transmission Date: 20150721
  Serious: Yes (Life-Threatening)
  Sender: FDA-Public Use
  Company Number: PL-BANPHARM-20153363

PATIENT
  Age: 34 Year
  Sex: Male

DRUGS (1)
  1. NAPROXEN UNKNOWN PRODUCT [Suspect]
     Active Substance: NAPROXEN
     Dosage: DF 250 MG, BID,
     Route: 048

REACTIONS (2)
  - Anaphylactic reaction [Recovered/Resolved]
  - Hypersensitivity [Recovered/Resolved]
